FAERS Safety Report 8990877 (Version 1)
Quarter: 2012Q4

REPORT INFORMATION
  Report Type: 
  Country: PK (occurrence: PK)
  Receive Date: 20121231
  Receipt Date: 20121231
  Transmission Date: 20130627
  Serious: Yes (Death)
  Sender: FDA-Public Use
  Company Number: PHHY2012PK121093

PATIENT
  Age: 70 Year
  Sex: Female

DRUGS (2)
  1. ACLASTA [Suspect]
     Indication: OSTEOPOROSIS
     Dosage: UNK
     Route: 042
     Dates: start: 20120103
  2. CALCIUM [Concomitant]
     Indication: OSTEOPOROSIS
     Dosage: UNK
     Route: 048
     Dates: start: 2012

REACTIONS (1)
  - Cardiac disorder [Fatal]
